FAERS Safety Report 7609106-7 (Version None)
Quarter: 2011Q3

REPORT INFORMATION
  Report Type: 
  Country: None (occurrence: None)
  Receive Date: 20110714
  Receipt Date: 20110629
  Transmission Date: 20111222
  Serious: Yes (Other)
  Sender: FDA-Public Use
  Company Number: GB-JNJFOC-20110305249

PATIENT
  Sex: Female

DRUGS (4)
  1. REMICADE [Suspect]
     Route: 042
     Dates: start: 20110308, end: 20110308
  2. HYDROCORTISONE [Concomitant]
     Indication: PREMEDICATION
     Route: 042
     Dates: start: 20110309
  3. REMICADE [Suspect]
     Indication: CROHN'S DISEASE
     Dosage: 280 MG
     Route: 042
     Dates: start: 20110215
  4. AZATHIOPRINE [Concomitant]
     Indication: CROHN'S DISEASE
     Route: 065
     Dates: start: 20110313

REACTIONS (7)
  - PANIC DISORDER [None]
  - FLUSHING [None]
  - HYPERHIDROSIS [None]
  - HEADACHE [None]
  - DYSPNOEA [None]
  - TACHYCARDIA [None]
  - INFUSION RELATED REACTION [None]
